FAERS Safety Report 18131121 (Version 5)
Quarter: 2021Q1

REPORT INFORMATION
  Report Type: Report from Study
  Country: MX (occurrence: MX)
  Receive Date: 20200810
  Receipt Date: 20210129
  Transmission Date: 20210419
  Serious: Yes (Death, Life-Threatening, Other)
  Sender: FDA-Public Use
  Company Number: MX-BRISTOL-MYERS SQUIBB COMPANY-BMS-2020-062182

PATIENT
  Age: 50 Year
  Sex: Female
  Weight: 77 kg

DRUGS (5)
  1. IPILIMUMAB [Suspect]
     Active Substance: IPILIMUMAB
     Indication: RENAL CELL CARCINOMA
     Dosage: 50 MILLILITER
     Route: 042
     Dates: start: 20191226, end: 20200311
  2. LOSARTAN. [Concomitant]
     Active Substance: LOSARTAN
     Indication: PRODUCT USED FOR UNKNOWN INDICATION
     Dosage: 50 MILLIGRAM
     Route: 048
     Dates: start: 20160101
  3. ONDANSETRON [Concomitant]
     Active Substance: ONDANSETRON
     Indication: HYPERPHOSPHATAEMIA
  4. NIVOLUMAB [Suspect]
     Active Substance: NIVOLUMAB
     Indication: RENAL CELL CARCINOMA
     Dosage: 120 MILLILITER
     Route: 042
     Dates: start: 20191226, end: 20200626
  5. ONDANSETRON [Concomitant]
     Active Substance: ONDANSETRON
     Indication: HYPONATRAEMIA
     Dosage: UNK
     Route: 065
     Dates: start: 20200728

REACTIONS (1)
  - Adrenal insufficiency [Fatal]

NARRATIVE: CASE EVENT DATE: 20200729
